FAERS Safety Report 5678104-5 (Version None)
Quarter: 2008Q1

REPORT INFORMATION
  Report Type: 
  Country: None (occurrence: None)
  Receive Date: 20080324
  Receipt Date: 20080324
  Transmission Date: 20080703
  Serious: Yes (Other)
  Sender: FDA-Public Use
  Company Number: None

PATIENT
  Sex: Male
  Weight: 5.4432 kg

DRUGS (1)
  1. ENALAPRIL MALEATE [Suspect]
     Indication: HYPERTENSION
     Dosage: 2 X DAILY PO
     Route: 048
     Dates: start: 20020615, end: 20021214

REACTIONS (2)
  - ILL-DEFINED DISORDER [None]
  - NERVOUS SYSTEM DISORDER [None]
